FAERS Safety Report 4377169-0 (Version None)
Quarter: 2004Q2

REPORT INFORMATION
  Report Type: 
  Country: None (occurrence: None)
  Receive Date: 20040614
  Receipt Date: 20040614
  Transmission Date: 20050107
  Serious: Yes (Other)
  Sender: FDA-Public Use
  Company Number: None

PATIENT
  Age: 37 Year
  Sex: Male
  Weight: 74.8435 kg

DRUGS (1)
  1. CRYOLIFE SEMITENDINOSOUS ALLOGRAFT [Suspect]
     Dates: start: 20030422

REACTIONS (1)
  - PHARMACEUTICAL PRODUCT COMPLAINT [None]
